FAERS Safety Report 7590380-0 (Version None)
Quarter: 2011Q3

REPORT INFORMATION
  Report Type: 
  Country: None (occurrence: None)
  Receive Date: 20110705
  Receipt Date: 20110620
  Transmission Date: 20111222
  Serious: Yes (Other)
  Sender: FDA-Public Use
  Company Number: FR-BAYER-2011-050036

PATIENT
  Age: 23 Year
  Sex: Female

DRUGS (1)
  1. ESTRADIOL VALERATE/DIENOGEST [Suspect]
     Indication: PRODUCT USED FOR UNKNOWN INDICATION

REACTIONS (5)
  - HAEMORRHAGIC CYST [None]
  - DYSPAREUNIA [None]
  - HAEMORRHAGE [None]
  - PAIN [None]
  - FUNGAL INFECTION [None]
